FAERS Safety Report 13376904 (Version 2)
Quarter: 2017Q2

REPORT INFORMATION
  Report Type: Report from Study
  Country: US (occurrence: US)
  Receive Date: 20170328
  Receipt Date: 20170407
  Transmission Date: 20170830
  Serious: Yes (Other)
  Sender: FDA-Public Use
  Company Number: US-GILEAD-2017-0263546

PATIENT
  Age: 57 Year
  Sex: Male
  Weight: 61.22 kg

DRUGS (1)
  1. LEDIPASVIR/SOFOSBUVIR [Suspect]
     Active Substance: LEDIPASVIR\SOFOSBUVIR
     Indication: CHRONIC HEPATITIS C
     Dosage: 1 DF, QD
     Route: 048
     Dates: start: 20151117, end: 20160217

REACTIONS (2)
  - Therapeutic response unexpected [Not Recovered/Not Resolved]
  - Hepatic cancer [Not Recovered/Not Resolved]
